FAERS Safety Report 11862742 (Version 2)
Quarter: 2016Q1

REPORT INFORMATION
  Report Type: Report from Study
  Country: DE (occurrence: DE)
  Receive Date: 20151223
  Receipt Date: 20160106
  Transmission Date: 20160526
  Serious: Yes (Other)
  Sender: FDA-Public Use
  Company Number: DE-ROCHE-1681791

PATIENT

DRUGS (1)
  1. ALTEPLASE [Suspect]
     Active Substance: ALTEPLASE
     Indication: CEREBROVASCULAR ACCIDENT
     Dosage: 0.6 TO 0.9 MG/KG BODY WEIGHT (STARTED WITHIN 4.5 H OF ONSET)
     Route: 042

REACTIONS (1)
  - Thyrotoxic crisis [Unknown]
